FAERS Safety Report 8032667-3 (Version None)
Quarter: 2012Q1

REPORT INFORMATION
  Report Type: 
  Country: None (occurrence: None)
  Receive Date: 20120110
  Receipt Date: 20111019
  Transmission Date: 20120608
  Serious: No
  Sender: FDA-Public Use
  Company Number: US-COVIDIEN/TYCO HEALTHCARE/MALLINCKRODT-T201102392

PATIENT
  Sex: Female

DRUGS (2)
  1. OPTIRAY 160 [Suspect]
     Indication: COMPUTERISED TOMOGRAM
     Dosage: 100 ML, SINGLE
     Route: 042
     Dates: start: 20111019, end: 20111019
  2. MEDROL [Concomitant]
     Indication: PREMEDICATION
     Dosage: UNK

REACTIONS (5)
  - URTICARIA [None]
  - DYSPNOEA [None]
  - SNEEZING [None]
  - RASH [None]
  - PRURITUS [None]
